FAERS Safety Report 13506813 (Version 1)
Quarter: 2017Q2

REPORT INFORMATION
  Report Type: Spontaneous
  Country: SE (occurrence: SE)
  Receive Date: 20170502
  Receipt Date: 20170502
  Transmission Date: 20170830
  Serious: Yes (Disabling)
  Sender: FDA-Public Use
  Company Number: PHHY2017SE060504

PATIENT
  Age: 25 Year
  Sex: Male
  Weight: 111 kg

DRUGS (2)
  1. BUPRENORPHINE SANDOZ [Suspect]
     Active Substance: BUPRENORPHINE
     Dosage: TABLETS OF 8 MG AND 2 MG DOSED 16-20 MG DAILY
     Route: 060
  2. BUPRENORPHINE SANDOZ [Suspect]
     Active Substance: BUPRENORPHINE
     Indication: DRUG USE DISORDER
     Dosage: 16-20 MG PER DAILY
     Route: 060

REACTIONS (2)
  - Periodontitis [Not Recovered/Not Resolved]
  - Teeth brittle [Not Recovered/Not Resolved]

NARRATIVE: CASE EVENT DATE: 20120401
